FAERS Safety Report 8889019 (Version 2)
Quarter: 2012Q4

REPORT INFORMATION
  Report Type: 
  Country: US (occurrence: US)
  Receive Date: 20121106
  Receipt Date: 20121113
  Transmission Date: 20130627
  Serious: No
  Sender: FDA-Public Use
  Company Number: US-ASTRAZENECA-2012SE82995

PATIENT
  Age: 84 Year
  Sex: Male

DRUGS (1)
  1. VIMOVO [Suspect]
     Dosage: UNKNOWN
     Route: 048

REACTIONS (4)
  - Gait disturbance [Unknown]
  - Pain [Unknown]
  - Mobility decreased [Unknown]
  - Drug dose omission [Unknown]
